FAERS Safety Report 24053036 (Version 1)
Quarter: 2024Q3

REPORT INFORMATION
  Report Type: Spontaneous
  Country: US (occurrence: US)
  Receive Date: 20240705
  Receipt Date: 20240705
  Transmission Date: 20241017
  Serious: Yes (Hospitalization)
  Sender: MERCK
  Company Number: US-009507513-2406USA010319

PATIENT
  Sex: Female

DRUGS (2)
  1. KEYTRUDA [Suspect]
     Active Substance: PEMBROLIZUMAB
     Dosage: UNK
     Dates: end: 2024
  2. LENVATINIB MESYLATE [Suspect]
     Active Substance: LENVATINIB MESYLATE
     Dosage: 14 MILLIGRAM
     Route: 048
     Dates: end: 2024

REACTIONS (7)
  - Dehydration [Unknown]
  - Weight decreased [Unknown]
  - Nocturia [Unknown]
  - Stomatitis [Unknown]
  - Dysphonia [Unknown]
  - Aphonia [Unknown]
  - Product use issue [Unknown]

NARRATIVE: CASE EVENT DATE: 20240101
